FAERS Safety Report 24287687 (Version 6)
Quarter: 2024Q4

REPORT INFORMATION
  Report Type: Spontaneous
  Country: US (occurrence: US)
  Receive Date: 20240905
  Receipt Date: 20241029
  Transmission Date: 20250115
  Serious: Yes (Hospitalization)
  Sender: NOVARTIS
  Company Number: US-002147023-NVSC2024US178731

PATIENT
  Age: 70 Year
  Sex: Male
  Weight: 70.2 kg

DRUGS (2)
  1. PLUVICTO [Suspect]
     Active Substance: LUTETIUM LU-177 VIPIVOTIDE TETRAXETAN
     Indication: Product used for unknown indication
     Dosage: UNK
     Route: 041
     Dates: start: 20240724, end: 20240724
  2. PLUVICTO [Suspect]
     Active Substance: LUTETIUM LU-177 VIPIVOTIDE TETRAXETAN
     Dosage: 194.77 UNK (EVERY 6 WEEKS) (OUT OF 196 MILLICURIES BETWEEN WHAT WAS LEFT IN VIAL AND SYRINGE)
     Route: 065
     Dates: start: 20240725, end: 20240725

REACTIONS (3)
  - Blood sodium decreased [Not Recovered/Not Resolved]
  - General physical health deterioration [Unknown]
  - Product dose omission issue [Unknown]

NARRATIVE: CASE EVENT DATE: 20240809
